FAERS Safety Report 6730468-7 (Version None)
Quarter: 2010Q2

REPORT INFORMATION
  Report Type: 
  Country: None (occurrence: None)
  Receive Date: 20100514
  Receipt Date: 20100505
  Transmission Date: 20101027
  Serious: Yes (Hospitalization)
  Sender: FDA-Public Use
  Company Number: FABR-1001070

PATIENT
  Age: 60 Year
  Sex: Male
  Weight: 110 kg

DRUGS (9)
  1. FABRAZYME         (AGALSIDASE BETA) POWDER FOR SOLUTION FOR INFUSION [Suspect]
     Indication: FABRY'S DISEASE
     Dosage: 110 MG, Q2W, INTRAVENOUS
     Route: 042
     Dates: start: 20050101
  2. SIMVASTATIN [Concomitant]
  3. COUMADIN [Concomitant]
  4. NITROGLYCERIN (CLYCERYL TRINITRATE) [Concomitant]
  5. METOPROLOL TARTRATE [Concomitant]
  6. ZOLOFT [Concomitant]
  7. PLAVIX [Concomitant]
  8. ADVIL LIQUI-GELS [Concomitant]
  9. LOSARTAN POTASSIUM [Concomitant]

REACTIONS (9)
  - BLOOD CULTURE POSITIVE [None]
  - BLOOD PRESSURE DECREASED [None]
  - BODY TEMPERATURE INCREASED [None]
  - CELLULITIS [None]
  - CHILLS [None]
  - FALL [None]
  - HYPERHIDROSIS [None]
  - INFUSION SITE REACTION [None]
  - TREMOR [None]
